FAERS Safety Report 24465168 (Version 1)
Quarter: 2024Q4

REPORT INFORMATION
  Report Type: Report from Study
  Country: US (occurrence: US)
  Receive Date: 20241018
  Receipt Date: 20241018
  Transmission Date: 20250114
  Serious: No
  Sender: ROCHE
  Company Number: US-ROCHE-3526260

PATIENT
  Age: 51 Year
  Sex: Female
  Weight: 88.9 kg

DRUGS (4)
  1. XOLAIR [Suspect]
     Active Substance: OMALIZUMAB
     Indication: Chronic spontaneous urticaria
     Dosage: ONE SHOT IN EACH ARM ;ONGOING: NO
     Route: 058
     Dates: start: 2021, end: 2021
  2. XOLAIR [Suspect]
     Active Substance: OMALIZUMAB
     Indication: Urticaria
     Dosage: FOR 3 MONTHS , ONE SHOT IN EACH ARM ;ONGOING: NO
     Route: 058
     Dates: start: 2021, end: 2021
  3. XOLAIR [Suspect]
     Active Substance: OMALIZUMAB
     Indication: Idiopathic urticaria
     Dosage: ONE SHOT IN EACH ARM ;ONGOING: NO
     Route: 058
     Dates: start: 2022, end: 2023
  4. XOLAIR [Suspect]
     Active Substance: OMALIZUMAB
     Route: 058

REACTIONS (5)
  - Urticaria [Not Recovered/Not Resolved]
  - Pruritus [Unknown]
  - Swelling [Unknown]
  - Skin burning sensation [Unknown]
  - Off label use [Unknown]

NARRATIVE: CASE EVENT DATE: 20210101
